FAERS Safety Report 10056248 (Version 4)
Quarter: 2014Q2

REPORT INFORMATION
  Report Type: Spontaneous
  Country: US (occurrence: US)
  Receive Date: 20140403
  Receipt Date: 20140606
  Transmission Date: 20141212
  Serious: Yes (Other)
  Sender: FDA-Public Use
  Company Number: US-PFIZER INC-2014090723

PATIENT
  Sex: Female

DRUGS (2)
  1. FELDENE [Suspect]
     Dosage: UNK
  2. B12 SHOTS [Suspect]
     Dosage: UNK

REACTIONS (5)
  - Colon cancer [Unknown]
  - Large intestine polyp [Unknown]
  - Skin cancer [Unknown]
  - Hypothyroidism [Unknown]
  - Tendon injury [Unknown]
